FAERS Safety Report 8022062-5 (Version None)
Quarter: 2012Q1

REPORT INFORMATION
  Report Type: 
  Country: None (occurrence: None)
  Receive Date: 20120104
  Receipt Date: 20120102
  Transmission Date: 20120608
  Serious: Yes (Hospitalization)
  Sender: FDA-Public Use
  Company Number: PHEH2012US000446

PATIENT
  Sex: Male

DRUGS (1)
  1. EXJADE [Suspect]
     Indication: IRON OVERLOAD
     Dosage: 375 MG, DAILY
     Route: 048
     Dates: start: 20080304

REACTIONS (2)
  - SERUM FERRITIN INCREASED [None]
  - ACUTE CHEST SYNDROME [None]
